FAERS Safety Report 19716223 (Version 1)
Quarter: 2021Q3

REPORT INFORMATION
  Report Type: Spontaneous
  Country: US (occurrence: US)
  Receive Date: 20210819
  Receipt Date: 20210819
  Transmission Date: 20211014
  Serious: Yes (Other)
  Sender: FDA-Public Use
  Company Number: US-BRISTOL-MYERS SQUIBB COMPANY-BMS-2021-080140

PATIENT
  Age: 50 Year
  Sex: Male

DRUGS (5)
  1. IPILIMUMAB [Suspect]
     Active Substance: IPILIMUMAB
     Dosage: FOLLOWED BY 4 CYCLES OF 3 MG/KG
     Route: 065
  2. NIVOLUMAB [Suspect]
     Active Substance: NIVOLUMAB
     Dosage: FIXED DOSE OF 480 MG
     Route: 065
     Dates: start: 201805, end: 201912
  3. IPILIMUMAB [Suspect]
     Active Substance: IPILIMUMAB
     Indication: OESOPHAGEAL CARCINOMA
     Dosage: FIRST 2 CYCLES WERE GIVEN WITH A REDUCED DOSE OF 1MG/KG
     Route: 065
     Dates: start: 201712
  4. NIVOLUMAB [Suspect]
     Active Substance: NIVOLUMAB
     Dosage: FOLLOWED BY 4 CYCLES OF  1 MG/KG
     Route: 065
  5. NIVOLUMAB [Suspect]
     Active Substance: NIVOLUMAB
     Indication: OESOPHAGEAL CARCINOMA
     Dosage: FIRST 2 CYCLES WERE GIVEN WITH A REDUCED DOSE OF 3 MG/KG
     Route: 065
     Dates: start: 201712

REACTIONS (2)
  - Intentional product use issue [Unknown]
  - Immune-mediated thyroiditis [Unknown]

NARRATIVE: CASE EVENT DATE: 2018
